FAERS Safety Report 5775119-3 (Version None)
Quarter: 2008Q2

REPORT INFORMATION
  Report Type: 
  Country: None (occurrence: None)
  Receive Date: 20080617
  Receipt Date: 20080604
  Transmission Date: 20081010
  Serious: Yes (Hospitalization, Other)
  Sender: FDA-Public Use
  Company Number: AU-NOVOPROD-276052

PATIENT
  Sex: Male

DRUGS (1)
  1. MIXTARD HUMAN 70/30 [Suspect]
     Indication: DRUG USE FOR UNKNOWN INDICATION

REACTIONS (2)
  - CEREBROVASCULAR ACCIDENT [None]
  - NEOPLASM MALIGNANT [None]
